FAERS Safety Report 9473454 (Version 2)
Quarter: 2014Q3

REPORT INFORMATION
  Report Type: Spontaneous
  Country: US (occurrence: US)
  Receive Date: 20130823
  Receipt Date: 20140808
  Transmission Date: 20150326
  Serious: No
  Sender: FDA-Public Use
  Company Number: US-BRISTOL-MYERS SQUIBB COMPANY-19004712

PATIENT
  Age: 59 Year
  Sex: Male
  Weight: 88 kg

DRUGS (4)
  1. SPRYCEL [Suspect]
     Active Substance: DASATINIB
     Indication: ACUTE LYMPHOCYTIC LEUKAEMIA
     Dosage: TABS
     Route: 048
     Dates: start: 20130328
  2. ACYCLOVIR. [Concomitant]
     Active Substance: ACYCLOVIR
     Dosage: FORMULATION: ACYCLOVIR NA SOLN 500MG/20
  3. LEVOTHYROXINE [Concomitant]
     Active Substance: LEVOTHYROXINE
     Dosage: LEVOTHYROXINE INJECTION 500 MCG
  4. BACTRIM DS [Concomitant]
     Active Substance: SULFAMETHOXAZOLE\TRIMETHOPRIM
     Dosage: BACTRIM DS TAB 800-160

REACTIONS (3)
  - Joint swelling [Recovering/Resolving]
  - Cough [Unknown]
  - Peripheral swelling [Recovering/Resolving]

NARRATIVE: CASE EVENT DATE: 20130405
